FAERS Safety Report 16713235 (Version 2)
Quarter: 2019Q3

REPORT INFORMATION
  Report Type: Spontaneous
  Country: US (occurrence: US)
  Receive Date: 20190817
  Receipt Date: 20190831
  Transmission Date: 20191004
  Serious: No
  Sender: FDA-Public Use
  Company Number: US-ELI_LILLY_AND_COMPANY-US201908002476

PATIENT
  Sex: Female

DRUGS (1)
  1. TALTZ [Suspect]
     Active Substance: IXEKIZUMAB
     Indication: PRODUCT USED FOR UNKNOWN INDICATION
     Dosage: UNK, UNKNOWN
     Route: 065
     Dates: start: 201907

REACTIONS (6)
  - Pain [Unknown]
  - Injection site mass [Recovered/Resolved]
  - Visual impairment [Unknown]
  - Limb girth increased [Unknown]
  - Psoriasis [Unknown]
  - Injection site pain [Unknown]
